FAERS Safety Report 5727071-4 (Version None)
Quarter: 2008Q2

REPORT INFORMATION
  Report Type: 
  Country: None (occurrence: None)
  Receive Date: 20080505
  Receipt Date: 20080423
  Transmission Date: 20081010
  Serious: Yes (Hospitalization)
  Sender: FDA-Public Use
  Company Number: ZA-ELI_LILLY_AND_COMPANY-ZA200804006624

PATIENT
  Age: 36 Year
  Sex: Female

DRUGS (10)
  1. ZYPREXA [Suspect]
     Indication: MANIA
     Dosage: 5 MG, DAILY (1/D)
     Route: 048
     Dates: start: 20080201
  2. ZYPREXA [Suspect]
     Dosage: 20 MG, UNK
     Dates: start: 20080328
  3. ZYPREXA [Suspect]
     Dosage: 30 MG, UNK
     Dates: start: 20080415
  4. VALPROATE SODIUM [Concomitant]
     Indication: MANIA
     Dosage: UNK, UNKNOWN
     Route: 065
  5. BACTRIM [Concomitant]
     Indication: PROPHYLAXIS
     Dosage: UNK, UNKNOWN
     Route: 065
  6. AZT [Concomitant]
     Indication: HIV INFECTION
     Dosage: UNK, UNKNOWN
     Route: 065
     Dates: start: 20080301
  7. LAMIVUDINE [Concomitant]
     Indication: HIV INFECTION
     Dosage: UNK, UNKNOWN
     Route: 065
     Dates: start: 20080301
  8. NEVIRAPINE [Concomitant]
     Indication: HIV INFECTION
     Dosage: UNK, UNKNOWN
     Route: 065
     Dates: start: 20080301
  9. HALOPERIDOL [Concomitant]
     Dosage: UNK, UNKNOWN
     Route: 065
  10. RISPERIDONE [Concomitant]
     Dosage: UNK, UNKNOWN
     Route: 065

REACTIONS (3)
  - DRUG INEFFECTIVE [None]
  - DRUG INTERACTION [None]
  - OVERDOSE [None]
